FAERS Safety Report 6284242-9 (Version None)
Quarter: 2009Q3

REPORT INFORMATION
  Report Type: 
  Country: None (occurrence: None)
  Receive Date: 20090727
  Receipt Date: 20090715
  Transmission Date: 20100115
  Serious: Yes (Life-Threatening, Hospitalization)
  Sender: FDA-Public Use
  Company Number: DE-RANBAXY-2009RR-25688

PATIENT
  Age: 77 Year
  Sex: Female
  Weight: 71 kg

DRUGS (13)
  1. PREDNISOLONE [Suspect]
     Indication: RHEUMATOID ARTHRITIS
     Dosage: UNK
     Route: 048
     Dates: start: 20060901
  2. DIGITOXIN TAB [Suspect]
     Indication: ATRIAL FIBRILLATION
     Dosage: 0.07 MG, QD
     Route: 048
     Dates: start: 20070901, end: 20090514
  3. VERAPAMIL [Suspect]
     Indication: ATRIAL FIBRILLATION
     Dosage: UNK
     Route: 048
     Dates: start: 20060101, end: 20090514
  4. AZITHROMYCIN ABZ [Suspect]
     Indication: BRONCHITIS
     Dosage: UNK
     Dates: start: 20090501, end: 20090511
  5. ACETYLSALICYLIC ACID [Concomitant]
     Indication: CORONARY ARTERY DISEASE
     Dosage: UNK
     Route: 048
     Dates: start: 20080501
  6. AMBROXOL [Concomitant]
     Indication: BRONCHITIS
     Dosage: UNK
     Route: 048
     Dates: start: 20090501, end: 20090511
  7. CALCIUM D3 [Concomitant]
     Indication: OSTEOPOROSIS
     Dosage: UNK
     Route: 048
     Dates: start: 20060101
  8. ESIDRIX [Concomitant]
     Indication: HYPERTENSION
     Dosage: UNK
     Route: 048
     Dates: start: 20070101
  9. EUTHYROX [Concomitant]
     Indication: THYROID FUNCTION TEST ABNORMAL
     Dosage: UNK
     Route: 048
     Dates: start: 19960101
  10. FOSAMAX [Concomitant]
     Indication: OSTEOPOROSIS
     Dosage: UNK
     Route: 048
     Dates: start: 20060101
  11. MTX [Concomitant]
     Indication: RHEUMATOID ARTHRITIS
     Dosage: UNK
     Route: 058
     Dates: start: 20090202, end: 20090216
  12. SYMBICORT [Concomitant]
     Indication: BRONCHITIS
     Dosage: UNK
     Route: 055
     Dates: start: 20090501
  13. VOLATREN RESINAT [Concomitant]
     Indication: RHEUMATOID ARTHRITIS
     Dosage: UNK
     Route: 048
     Dates: start: 20060901, end: 20090516

REACTIONS (3)
  - DRUG INTERACTION [None]
  - PULMONARY EMBOLISM [None]
  - THERAPEUTIC AGENT TOXICITY [None]
